FAERS Safety Report 7001344-X (Version None)
Quarter: 2010Q3

REPORT INFORMATION
  Report Type: 
  Country: None (occurrence: None)
  Receive Date: 20100920
  Receipt Date: 20100419
  Transmission Date: 20110219
  Serious: Yes (Other)
  Sender: FDA-Public Use
  Company Number: US-ASTRAZENECA-2009SE14153

PATIENT
  Age: 751 Month
  Sex: Female

DRUGS (1)
  1. SEROQUEL [Suspect]
     Route: 048

REACTIONS (4)
  - CONVULSION [None]
  - DRUG DOSE OMISSION [None]
  - FOOT FRACTURE [None]
  - UPPER LIMB FRACTURE [None]
